FAERS Safety Report 5566673-5 (Version None)
Quarter: 2007Q4

REPORT INFORMATION
  Report Type: 
  Country: None (occurrence: None)
  Receive Date: 20071219
  Receipt Date: 20071211
  Transmission Date: 20080405
  Serious: Yes (Hospitalization)
  Sender: FDA-Public Use
  Company Number: US-ROCHE-530701

PATIENT
  Age: 60 Year
  Sex: Male
  Weight: 48.5 kg

DRUGS (11)
  1. MYCOPHENOLATE MOFETIL [Suspect]
     Route: 048
     Dates: start: 20060805, end: 20071026
  2. TACROLIMUS [Suspect]
     Route: 048
     Dates: start: 20060805
  3. PREDNISONE [Suspect]
     Route: 048
     Dates: start: 20060805, end: 20071001
  4. SOLU-MEDROL [Suspect]
     Route: 042
     Dates: start: 20060804
  5. FLOMAX [Concomitant]
  6. FOSAMAX [Concomitant]
  7. NEURONTIN [Concomitant]
  8. NEXIUM [Concomitant]
  9. SEREVENT [Concomitant]
     Dosage: REPORTED AS SEREVENT DISCUS.
  10. VALTREX [Concomitant]
  11. LORTAB [Concomitant]

REACTIONS (1)
  - OSTEONECROSIS [None]
